FAERS Safety Report 21957631 (Version 2)
Quarter: 2023Q1

REPORT INFORMATION
  Report Type: Spontaneous
  Country: PL (occurrence: PL)
  Receive Date: 20230206
  Receipt Date: 20230217
  Transmission Date: 20230417
  Serious: Yes (Hospitalization, Other)
  Sender: FDA-Public Use
  Company Number: PL-TEVA-2023-PL-2851301

PATIENT
  Age: 8 Year
  Sex: Male

DRUGS (1)
  1. AZITHROMYCIN [Suspect]
     Active Substance: AZITHROMYCIN
     Indication: Product used for unknown indication
     Dosage: TOOK ONLY TWO DOSES
     Dates: end: 20230125

REACTIONS (5)
  - Hypoaesthesia [Recovered/Resolved]
  - Dysstasia [Recovered/Resolved]
  - Gait inability [Recovered/Resolved]
  - Influenza [Recovered/Resolved]
  - Myositis [Recovered/Resolved]

NARRATIVE: CASE EVENT DATE: 20230125
